FAERS Safety Report 13238543 (Version 1)
Quarter: 2017Q1

REPORT INFORMATION
  Report Type: Spontaneous
  Country: US (occurrence: US)
  Receive Date: 20170216
  Receipt Date: 20170216
  Transmission Date: 20170428
  Serious: No
  Sender: FDA-Public Use
  Company Number: US-ACTAVIS-2016-17057

PATIENT
  Sex: Male

DRUGS (1)
  1. OXYCODONE HYDROCHLORIDE (AELLC) [Suspect]
     Active Substance: OXYCODONE HYDROCHLORIDE
     Indication: PAIN
     Dosage: UNK UNK, UNKNOWN
     Route: 065

REACTIONS (6)
  - Mydriasis [Unknown]
  - Drug ineffective [Unknown]
  - Blood pressure increased [Unknown]
  - Nausea [Unknown]
  - Feeling jittery [Unknown]
  - Withdrawal syndrome [Unknown]
